FAERS Safety Report 12133374 (Version 1)
Quarter: 2016Q1

REPORT INFORMATION
  Report Type: Spontaneous
  Country: US (occurrence: US)
  Receive Date: 20160301
  Receipt Date: 20160301
  Transmission Date: 20160526
  Serious: No
  Sender: FDA-Public Use
  Company Number: US-BAYER-2016-035760

PATIENT
  Sex: Female

DRUGS (3)
  1. ALKA-SELTZER HEARTBURN RELIEFCHEWS [Suspect]
     Active Substance: CALCIUM CARBONATE
     Indication: DYSPEPSIA
  2. ALEVE [Suspect]
     Active Substance: NAPROXEN SODIUM
  3. ALKA-SELTZER HEARTBURN RELIEFCHEWS [Suspect]
     Active Substance: CALCIUM CARBONATE
     Indication: VOMITING

REACTIONS (2)
  - Maternal exposure during pregnancy [None]
  - Therapeutic response unexpected [None]
